FAERS Safety Report 6542703-9 (Version None)
Quarter: 2010Q1

REPORT INFORMATION
  Report Type: 
  Country: None (occurrence: None)
  Receive Date: 20100119
  Receipt Date: 20100107
  Transmission Date: 20100710
  Serious: Yes (Other)
  Sender: FDA-Public Use
  Company Number: GB-MERCK-1001GBR00015

PATIENT
  Age: 67 Year
  Sex: Male

DRUGS (6)
  1. FOSAMAX [Suspect]
     Route: 048
     Dates: start: 20020913
  2. AZATHIOPRINE [Suspect]
     Route: 065
     Dates: start: 20020913
  3. POLYETHYLENE GLYCOL 3350 AND POTASSIUM CHLORIDE AND SODIUM BICARBONATE [Suspect]
     Indication: CONSTIPATION
     Route: 065
  4. OMEPRAZOLE [Suspect]
     Route: 048
     Dates: start: 20020913
  5. PREDNISOLONE [Suspect]
     Route: 065
     Dates: end: 20080417
  6. CARBAMAZEPINE [Suspect]
     Route: 048
     Dates: start: 20030108

REACTIONS (4)
  - CEREBROVASCULAR ACCIDENT [None]
  - CIRCULATORY COLLAPSE [None]
  - DYSSTASIA [None]
  - HYPOTONIA [None]
